FAERS Safety Report 7662997-6 (Version None)
Quarter: 2011Q3

REPORT INFORMATION
  Report Type: 
  Country: None (occurrence: None)
  Receive Date: 20110805
  Receipt Date: 20100730
  Transmission Date: 20111222
  Serious: No
  Sender: FDA-Public Use
  Company Number: US-ABBOTT-10P-163-0662401-00

PATIENT
  Sex: Female
  Weight: 81.72 kg

DRUGS (8)
  1. NIASPAN [Suspect]
     Dosage: DAILY DOSE: 500MG EVERY NIGHT
     Dates: start: 20100709
  2. MULTI-VITAMIN [Concomitant]
     Indication: PRODUCT USED FOR UNKNOWN INDICATION
  3. ZYRTEC [Concomitant]
     Indication: HYPERSENSITIVITY
  4. CALCIUM ACETATE [Concomitant]
     Indication: PRODUCT USED FOR UNKNOWN INDICATION
  5. VITAMIN D [Suspect]
     Dates: start: 20100701
  6. NIASPAN [Suspect]
     Indication: BLOOD CHOLESTEROL INCREASED
     Dosage: DAILY DOSE: 500MG EVERY NIGHT
     Dates: start: 20100501
  7. VITAMIN D [Suspect]
     Indication: VITAMIN D DECREASED
     Dates: start: 20090101
  8. SYNTHROID [Concomitant]
     Indication: HYPOTHYROIDISM

REACTIONS (1)
  - RASH [None]
